FAERS Safety Report 15580728 (Version 1)
Quarter: 2018Q4

REPORT INFORMATION
  Report Type: Spontaneous
  Country: US (occurrence: US)
  Receive Date: 20181103
  Receipt Date: 20181103
  Transmission Date: 20190205
  Serious: Yes (Disabling)
  Sender: FDA-Public Use
  Company Number: None

PATIENT
  Age: 66 Year
  Sex: Male
  Weight: 81.9 kg

DRUGS (10)
  1. PAONTOPRAZOLE [Concomitant]
  2. ACID REDUCER [Concomitant]
  3. BENECAR [Concomitant]
  4. METOPROLOL. [Concomitant]
     Active Substance: METOPROLOL
  5. CENTRUM SILVER MULTI VITAMIN [Concomitant]
  6. VITAMIN D3 [Concomitant]
     Active Substance: CHOLECALCIFEROL
  7. LEVOFLOXACIN 500 MG TABLET [Suspect]
     Active Substance: LEVOFLOXACIN
     Indication: PNEUMONIA
     Dosage: ?          QUANTITY:7 TABLET(S);?
     Route: 048
     Dates: start: 20180925, end: 20180927
  8. TERAZOSIN [Concomitant]
     Active Substance: TERAZOSIN\TERAZOSIN HYDROCHLORIDE
  9. ZETIA [Concomitant]
     Active Substance: EZETIMIBE
  10. CHOLESTEROL [Concomitant]
     Active Substance: CHOLESTEROL

REACTIONS (3)
  - Product complaint [None]
  - Nerve injury [None]
  - Neuropathy peripheral [None]

NARRATIVE: CASE EVENT DATE: 20180925
